FAERS Safety Report 4345924-9 (Version None)
Quarter: 2004Q2

REPORT INFORMATION
  Report Type: 
  Country: None (occurrence: None)
  Receive Date: 20040421
  Receipt Date: 20040405
  Transmission Date: 20050107
  Serious: Yes (Death)
  Sender: FDA-Public Use
  Company Number: 192140

PATIENT
  Age: 57 Year
  Sex: Female

DRUGS (2)
  1. AVONEX [Suspect]
     Indication: MULTIPLE SCLEROSIS
     Dosage: 30 MCG QW IM
     Route: 030
     Dates: start: 19990601
  2. AVONEX [Suspect]
     Indication: MULTIPLE SCLEROSIS

REACTIONS (6)
  - LUNG CANCER METASTATIC [None]
  - LUNG INFILTRATION [None]
  - METASTASES TO BONE [None]
  - METASTASES TO LIVER [None]
  - RESPIRATORY FAILURE [None]
  - SMALL CELL LUNG CANCER METASTATIC [None]
